FAERS Safety Report 20558955 (Version 1)
Quarter: 2022Q1

REPORT INFORMATION
  Report Type: Spontaneous
  Country: US (occurrence: US)
  Receive Date: 20220307
  Receipt Date: 20220307
  Transmission Date: 20220424
  Serious: No
  Sender: FDA-Public Use
  Company Number: US-TEVA-2022-US-2006751

PATIENT
  Age: 73 Year
  Sex: Female

DRUGS (2)
  1. VERAPAMIL [Suspect]
     Active Substance: VERAPAMIL HYDROCHLORIDE
     Indication: Migraine
     Route: 065
  2. ESTRADIOL [Suspect]
     Active Substance: ESTRADIOL
     Indication: Migraine
     Route: 065

REACTIONS (8)
  - Product use in unapproved indication [Unknown]
  - Headache [Unknown]
  - Peripheral coldness [Unknown]
  - Palpitations [Unknown]
  - Pain [Unknown]
  - Adverse event [Unknown]
  - Feeling abnormal [Unknown]
  - Sleep disorder [Unknown]
